FAERS Safety Report 15484601 (Version 2)
Quarter: 2018Q4

REPORT INFORMATION
  Report Type: Spontaneous
  Country: DE (occurrence: DE)
  Receive Date: 20181010
  Receipt Date: 20181031
  Transmission Date: 20190205
  Serious: Yes (Disabling)
  Sender: FDA-Public Use
  Company Number: DE-MYLANLABS-2018M1075122

PATIENT
  Age: 79 Year
  Sex: Female

DRUGS (10)
  1. ESTRADIOL. [Suspect]
     Active Substance: ESTRADIOL
     Dosage: 1 DF, QD (1 PUFF ONCE DAILY)
     Route: 062
     Dates: start: 201403, end: 201403
  2. ACETYLSALICYLIC ACID [Concomitant]
     Active Substance: ASPIRIN
     Indication: PRODUCT USED FOR UNKNOWN INDICATION
     Dosage: 100 MG, QD, 1 X 100 MG (IN THE EVENING)(100 MG, 1 IN 1 D)
     Route: 048
  3. CITALOPRAM [Concomitant]
     Active Substance: CITALOPRAM HYDROBROMIDE
     Indication: PRODUCT USED FOR UNKNOWN INDICATION
     Dosage: 2 DF, QD, 2 X 1 DAILY(UNKNOWN, 2 IN 1 D)
     Route: 048
  4. ESTRADIOL. [Suspect]
     Active Substance: ESTRADIOL
     Indication: MENOPAUSAL SYMPTOMS
     Dosage: 2 DF, QD (2 PUFF ONCE DAILY)
     Route: 062
     Dates: start: 20180404, end: 20180404
  5. PROGESTERONE. [Suspect]
     Active Substance: PROGESTERONE
     Dosage: 200 MG ONCE DAILY (IN THE EVENING)(UNKNOWN, 1 IN 1 D)
     Dates: start: 201403, end: 201403
  6. CONCOR [Concomitant]
     Active Substance: BISOPROLOL FUMARATE
     Indication: PRODUCT USED FOR UNKNOWN INDICATION
     Dosage: `2 DF, QD 2 X 5 MG DAILY, (UNKNOWN, 2 IN 1 D)
     Route: 048
  7. LACOSAMIDE. [Concomitant]
     Active Substance: LACOSAMIDE
     Indication: EPILEPSY
     Dosage: 2 DF, QD, 2 X 200 MG DAILY(UNKNOWN, 2 IN 1 D)
     Route: 048
     Dates: start: 1999
  8. PROGESTERONE. [Suspect]
     Active Substance: PROGESTERONE
     Indication: PREVENTION OF ENDOMETRIAL HYPERPLASIA
     Dosage: UNK
  9. ATORVASTATIN [Concomitant]
     Active Substance: ATORVASTATIN
     Indication: PRODUCT USED FOR UNKNOWN INDICATION
     Dosage: 1 DF, QD, 1 X 20 MG (IN THE EVENING)
     Route: 048
  10. BUDENOFALK [Concomitant]
     Active Substance: BUDESONIDE
     Indication: PRODUCT USED FOR UNKNOWN INDICATION
     Dosage: 2 DF, QD, 3 MG IN THE MORNING, 6 MG IN THE EVENING (UNKNOWN, 2 IN 1 D)
     Route: 048

REACTIONS (3)
  - Oestradiol decreased [Unknown]
  - Hot flush [Not Recovered/Not Resolved]
  - Pain in extremity [Not Recovered/Not Resolved]

NARRATIVE: CASE EVENT DATE: 201703
